FAERS Safety Report 8419697-4 (Version None)
Quarter: 2012Q2

REPORT INFORMATION
  Report Type: 
  Country: None (occurrence: None)
  Receive Date: 20120607
  Receipt Date: 20120528
  Transmission Date: 20120825
  Serious: Yes (Hospitalization)
  Sender: FDA-Public Use
  Company Number: JP-ELI_LILLY_AND_COMPANY-JP201205005897

PATIENT
  Age: 80 Year
  Sex: Male

DRUGS (7)
  1. TRAMADOL HYDROCHLORIDE AND ACETAMINOPHEN [Concomitant]
     Indication: OSTEOPOROSIS
     Dosage: 4 DF, QD
     Route: 048
     Dates: start: 20120315
  2. FOIPAN [Concomitant]
     Indication: PANCREATITIS
     Dosage: 600 MG, QD
     Route: 048
     Dates: start: 20090923
  3. COTRIM [Concomitant]
     Dosage: 1 DF, QD
     Route: 048
     Dates: start: 20090221
  4. OMEPRAZOLE [Concomitant]
     Indication: GASTRIC ULCER
     Dosage: 20 MG, QD
     Route: 048
     Dates: start: 20090918
  5. LASIX [Concomitant]
     Indication: CHRONIC OBSTRUCTIVE PULMONARY DISEASE
     Dosage: 10 MG, QD
     Route: 048
     Dates: start: 20090804
  6. PREDNISOLONE [Concomitant]
     Indication: CHRONIC OBSTRUCTIVE PULMONARY DISEASE
     Dosage: 5 MG, QD
     Route: 065
     Dates: start: 20081219
  7. FORTEO [Suspect]
     Indication: OSTEOPOROSIS
     Dosage: 20 UG, QD
     Route: 058
     Dates: start: 20120329, end: 20120405

REACTIONS (3)
  - HYPERKALAEMIA [None]
  - ABDOMINAL DISTENSION [None]
  - NAUSEA [None]
